FAERS Safety Report 14361835 (Version 2)
Quarter: 2018Q1

REPORT INFORMATION
  Report Type: Spontaneous
  Country: TR (occurrence: TR)
  Receive Date: 20180108
  Receipt Date: 20180227
  Transmission Date: 20180509
  Serious: Yes (Other)
  Sender: FDA-Public Use
  Company Number: TR-SUN PHARMACEUTICAL INDUSTRIES LTD-2017R1-159206

PATIENT
  Age: 39 Year
  Sex: Female

DRUGS (1)
  1. TEMOZOLOMIDE. [Suspect]
     Active Substance: TEMOZOLOMIDE
     Indication: DISEASE RECURRENCE
     Dosage: 150 MG/M2, 6 CYCLES
     Route: 065
     Dates: start: 201402

REACTIONS (1)
  - Disease progression [Recovered/Resolved]
